FAERS Safety Report 5285970-4 (Version None)
Quarter: 2007Q2

REPORT INFORMATION
  Report Type: 
  Country: None (occurrence: None)
  Receive Date: 20070404
  Receipt Date: 20070321
  Transmission Date: 20071010
  Serious: Yes (Hospitalization)
  Sender: FDA-Public Use
  Company Number: US-BAYER-200711702GDS

PATIENT
  Age: 10 Year
  Sex: Male

DRUGS (4)
  1. CAMPHOR [Suspect]
     Indication: INTENTIONAL DRUG MISUSE
     Dosage: UNIT DOSE: 95.37 MG
     Route: 048
  2. CLONIDINE [Concomitant]
     Indication: DRUG USE FOR UNKNOWN INDICATION
     Dosage: UNIT DOSE: 0.1 MG
     Route: 065
  3. METHYLPHENIDATE HCL [Concomitant]
     Indication: DRUG USE FOR UNKNOWN INDICATION
     Route: 065
  4. VALPROIC ACID [Concomitant]
     Indication: DRUG USE FOR UNKNOWN INDICATION
     Dosage: UNIT DOSE: 125 MG
     Route: 065

REACTIONS (7)
  - CHILLS [None]
  - INTENTIONAL DRUG MISUSE [None]
  - LETHARGY [None]
  - MUSCULOSKELETAL STIFFNESS [None]
  - NAUSEA [None]
  - NECK PAIN [None]
  - VOMITING [None]
